FAERS Safety Report 21608474 (Version 1)
Quarter: 2022Q4

REPORT INFORMATION
  Report Type: Spontaneous
  Country: JP (occurrence: JP)
  Receive Date: 20221117
  Receipt Date: 20221117
  Transmission Date: 20230113
  Serious: Yes (Hospitalization, Other)
  Sender: FDA-Public Use
  Company Number: JP-MYLANLABS-2022M1125504

PATIENT
  Sex: Female

DRUGS (4)
  1. VERAPAMIL [Interacting]
     Active Substance: VERAPAMIL HYDROCHLORIDE
     Indication: Product used for unknown indication
     Dosage: UNK
     Route: 048
  2. RHEUMATREX [Interacting]
     Active Substance: METHOTREXATE SODIUM
     Indication: Product used for unknown indication
     Dosage: UNK UNK, QW
     Route: 048
  3. IGURATIMOD [Concomitant]
     Active Substance: IGURATIMOD
     Dosage: UNK
     Route: 065
  4. FOLIC ACID [Concomitant]
     Active Substance: FOLIC ACID
     Dosage: UNK
     Route: 065

REACTIONS (4)
  - Blood pressure increased [Recovered/Resolved]
  - Drug interaction [Unknown]
  - Heart rate increased [Unknown]
  - Autonomic neuropathy [Unknown]

NARRATIVE: CASE EVENT DATE: 20221017
